FAERS Safety Report 4950519-X (Version None)
Quarter: 2006Q1

REPORT INFORMATION
  Report Type: 
  Country: None (occurrence: None)
  Receive Date: 20060322
  Receipt Date: 20060315
  Transmission Date: 20060701
  Serious: Yes (Hospitalization)
  Sender: FDA-Public Use
  Company Number: FR-GLAXOSMITHKLINE-B0416438A

PATIENT
  Age: 62 Year
  Sex: Female
  Weight: 48 kg

DRUGS (4)
  1. AUGMENTIN '125' [Suspect]
     Indication: BRONCHITIS
     Route: 048
     Dates: start: 20060212, end: 20060214
  2. DETURGYLONE [Suspect]
     Route: 045
     Dates: start: 20060212, end: 20060214
  3. ELUDRIL [Suspect]
     Route: 065
     Dates: start: 20060212, end: 20060214
  4. THALIDOMIDE [Concomitant]
     Indication: LIGHT CHAIN DISEASE
     Route: 048
     Dates: start: 20060130

REACTIONS (4)
  - PRURITUS [None]
  - PYREXIA [None]
  - RASH [None]
  - RASH MACULAR [None]
